FAERS Safety Report 13258636 (Version 4)
Quarter: 2017Q4

REPORT INFORMATION
  Report Type: Report from Study
  Country: US (occurrence: US)
  Receive Date: 20170222
  Receipt Date: 20171112
  Transmission Date: 20180320
  Serious: No
  Sender: FDA-Public Use
  Company Number: PHEH2017US004707

PATIENT
  Age: 18 Year
  Sex: Male

DRUGS (2)
  1. ILARIS [Suspect]
     Active Substance: CANAKINUMAB
     Indication: CRYOPYRIN ASSOCIATED PERIODIC SYNDROME
     Dosage: 150 MG, EVERY 8 WEEKS
     Route: 058
  2. ILARIS [Suspect]
     Active Substance: CANAKINUMAB
     Dosage: 150 MG, EVERY 6 WEEKS
     Route: 058

REACTIONS (11)
  - Pyrexia [Unknown]
  - Diarrhoea [Unknown]
  - Erythema [Unknown]
  - Testicular pain [Unknown]
  - Influenza [Unknown]
  - Musculoskeletal pain [Unknown]
  - Cyst [Unknown]
  - Abdominal pain lower [Unknown]
  - Viral infection [Unknown]
  - Cough [Unknown]
  - Oropharyngeal pain [Unknown]

NARRATIVE: CASE EVENT DATE: 20170206
